FAERS Safety Report 9738961 (Version 2)
Quarter: 2013Q4

REPORT INFORMATION
  Report Type: Report from Study
  Country: BR (occurrence: BR)
  Receive Date: 20131209
  Receipt Date: 20131209
  Transmission Date: 20140711
  Serious: Yes (Other)
  Sender: FDA-Public Use
  Company Number: PHHY2013BR138678

PATIENT
  Sex: Female
  Weight: 61 kg

DRUGS (6)
  1. EXELON PATCH [Suspect]
     Indication: DEMENTIA ALZHEIMER^S TYPE
     Dosage: 4.6 MG, QD 9MG/5CM2 (ONLY ONE PATCH)
     Route: 062
  2. RISSET [Suspect]
     Indication: DEMENTIA ALZHEIMER^S TYPE
     Dosage: 1 DF, BID (IN THE MORNING AND AT 8:30)
     Dates: start: 201308
  3. RIVOTRIL [Suspect]
     Indication: SLEEP DISORDER
     Dosage: 0.5 DF, UNK
  4. OMEPRAZOLE [Concomitant]
     Dosage: UNK UKN, UNK
  5. DOMPERIDONE [Concomitant]
     Dosage: UNK UKN, UNK
  6. ACETYLSALICYLIC ACID [Concomitant]
     Dosage: UNK UKN, UNK

REACTIONS (14)
  - Cardiac disorder [Unknown]
  - Dysstasia [Unknown]
  - Swelling face [Unknown]
  - Asthenopia [Unknown]
  - Dyspnoea [Not Recovered/Not Resolved]
  - Hypotonia [Unknown]
  - Mutism [Unknown]
  - Hypersomnia [Unknown]
  - Balance disorder [Unknown]
  - Erythema [Unknown]
  - Asthenia [Unknown]
  - Malaise [Unknown]
  - Tremor [Unknown]
  - Weight decreased [Unknown]
